FAERS Safety Report 25077109 (Version 2)
Quarter: 2025Q3

REPORT INFORMATION
  Report Type: Report from Study
  Country: US (occurrence: US)
  Receive Date: 20250314
  Receipt Date: 20250803
  Transmission Date: 20251021
  Serious: Yes (Other)
  Sender: ALEXION PHARMACEUTICALS
  Company Number: US-ASTRAZENECA-202503USA008976US

PATIENT
  Age: 43 Year
  Sex: Female

DRUGS (1)
  1. STRENSIQ [Suspect]
     Active Substance: ASFOTASE ALFA
     Indication: Phosphorus metabolism disorder
     Dosage: 40 MILLIGRAM, SIX TIMES/WEEK
     Route: 065

REACTIONS (10)
  - Chromaturia [Unknown]
  - Yellow skin [Unknown]
  - Kidney infection [Unknown]
  - Nephrolithiasis [Unknown]
  - Nausea [Unknown]
  - Mood altered [Unknown]
  - Acne cystic [Unknown]
  - Abnormal faeces [Unknown]
  - Bone pain [Not Recovered/Not Resolved]
  - Eyelid disorder [Unknown]
